FAERS Safety Report 7426228-4 (Version None)
Quarter: 2011Q2

REPORT INFORMATION
  Report Type: 
  Country: None (occurrence: None)
  Receive Date: 20110420
  Receipt Date: 20110418
  Transmission Date: 20111010
  Serious: Yes (Death)
  Sender: FDA-Public Use
  Company Number: A0889189A

PATIENT
  Sex: Female

DRUGS (1)
  1. AVANDIA [Suspect]
     Route: 048
     Dates: start: 20010101, end: 20040218

REACTIONS (1)
  - MYOCARDIAL INFARCTION [None]
